FAERS Safety Report 5615898-9 (Version None)
Quarter: 2008Q1

REPORT INFORMATION
  Report Type: 
  Country: None (occurrence: None)
  Receive Date: 20080201
  Receipt Date: 20080116
  Transmission Date: 20080703
  Serious: Yes (Hospitalization)
  Sender: FDA-Public Use
  Company Number: 2008JP000245

PATIENT
  Age: 45 Year
  Sex: Female

DRUGS (5)
  1. TACROLIMUS [Suspect]
     Indication: LUPUS NEPHRITIS
     Dosage: 3 MG, /D, ORAL
     Route: 048
     Dates: start: 20070809, end: 20070918
  2. PREDNISOLONE [Suspect]
     Dosage: 16 MG, /D, ORAL
     Route: 048
     Dates: start: 20040907
  3. LIPITOR [Concomitant]
  4. ALTAT (ROXATIDINE ACETATE HYDROCHLORIDE) [Concomitant]
  5. BONALON (ALNEDRONIC ACID) [Concomitant]

REACTIONS (4)
  - DISEASE RECURRENCE [None]
  - OSTEOPOROSIS [None]
  - PNEUMONIA [None]
  - SPINAL COMPRESSION FRACTURE [None]
